FAERS Safety Report 9357351 (Version 1)
Quarter: 2013Q2

REPORT INFORMATION
  Report Type: Other
  Country: FR (occurrence: FR)
  Receive Date: 20130620
  Receipt Date: 20130620
  Transmission Date: 20140414
  Serious: Yes (Hospitalization)
  Sender: FDA-Public Use
  Company Number: FR-MPIJNJ-2013-04598

PATIENT
  Sex: 0

DRUGS (5)
  1. VELCADE [Suspect]
     Indication: PLASMA CELL MYELOMA
     Dosage: 2.4 MG, UNK
     Route: 042
     Dates: start: 20130301, end: 20130402
  2. ENDOXAN [Suspect]
     Indication: PLASMA CELL MYELOMA
     Dosage: 1300 MG, UNK
     Route: 042
     Dates: start: 20130301, end: 20130326
  3. DEXAMETHASONE [Concomitant]
     Indication: PLASMA CELL MYELOMA
     Dosage: 40 MG, UNK
     Dates: start: 20130301, end: 20130303
  4. DEXAMETHASONE [Concomitant]
     Dosage: 20 MG, UNK
     Dates: start: 20130303
  5. DEXAMETHASONE [Concomitant]
     Dosage: 40 MG, UNK
     Dates: start: 20130304, end: 20130311

REACTIONS (3)
  - Ulcer haemorrhage [Recovering/Resolving]
  - Mesenteric vein thrombosis [Recovering/Resolving]
  - Ileus paralytic [Recovering/Resolving]
